FAERS Safety Report 13119844 (Version 1)
Quarter: 2017Q1

REPORT INFORMATION
  Report Type: Report from Study
  Country: US (occurrence: US)
  Receive Date: 20170117
  Receipt Date: 20170117
  Transmission Date: 20170428
  Serious: Yes (Life-Threatening, Hospitalization, Other)
  Sender: FDA-Public Use
  Company Number: US-ROCHE-1871918

PATIENT
  Age: 52 Year
  Sex: Male

DRUGS (5)
  1. DOXORUBICIN [Suspect]
     Active Substance: DOXORUBICIN
     Indication: HODGKIN^S DISEASE
     Dosage: ON DAY 1 AND 15 OF A 28 DAY CYCLE?LAST DOSE PRIOR TO SAE ON 14/SEP/2011
     Route: 042
     Dates: start: 20110511, end: 20110928
  2. BLEOMYCIN [Suspect]
     Active Substance: BLEOMYCIN SULFATE
     Indication: HODGKIN^S DISEASE
     Dosage: 10 UNITS/M2?ON DAY 1 AND 15 OF A 28 DAY CYCLE?LAST DOSE PRIOR TO SAE ON 14/SEP/2011
     Route: 042
     Dates: start: 20110511, end: 20110928
  3. VINBLASTINE [Suspect]
     Active Substance: VINBLASTINE
     Indication: HODGKIN^S DISEASE
     Dosage: ON DAY 1 AND 15 OF A 28 DAY CYCLE?LAST DOSE PRIOR TO SAE ON 14/SEP/2011
     Route: 042
     Dates: start: 20110511, end: 20110928
  4. DACARBAZINE. [Suspect]
     Active Substance: DACARBAZINE
     Indication: HODGKIN^S DISEASE
     Dosage: ON DAY 1 AN 15 OF A 28 DAY CYCLE?LAST DOSE PRIOR TO SAE ON 14/SEP/2011
     Route: 042
     Dates: start: 20110511, end: 20110928
  5. BEVACIZUMAB [Suspect]
     Active Substance: BEVACIZUMAB
     Indication: HODGKIN^S DISEASE
     Dosage: ON DAY 1 AND 15 OF A 28 DAY CYCLE?LAST DOSE PRIOR TO SAE ON 14/SEP/2011
     Route: 042
     Dates: start: 20110511, end: 20110928

REACTIONS (3)
  - Skin disorder [Unknown]
  - Decubitus ulcer [Unknown]
  - Soft tissue necrosis [Not Recovered/Not Resolved]

NARRATIVE: CASE EVENT DATE: 20110927
